FAERS Safety Report 5683306-8 (Version None)
Quarter: 2008Q1

REPORT INFORMATION
  Report Type: 
  Country: None (occurrence: None)
  Receive Date: 20080327
  Receipt Date: 20080118
  Transmission Date: 20080703
  Serious: Yes (Other)
  Sender: FDA-Public Use
  Company Number: US-PFIZER INC-2008007400

PATIENT
  Sex: Male
  Weight: 95.3 kg

DRUGS (1)
  1. CHANTIX [Suspect]
     Indication: SMOKING CESSATION THERAPY
     Dates: start: 20071215, end: 20080101

REACTIONS (7)
  - ABNORMAL DREAMS [None]
  - AGITATION [None]
  - DEPRESSION [None]
  - MOOD SWINGS [None]
  - SELF-INJURIOUS IDEATION [None]
  - SUICIDAL IDEATION [None]
  - VISION BLURRED [None]
